FAERS Safety Report 12574234 (Version 1)
Quarter: 2016Q3

REPORT INFORMATION
  Report Type: Spontaneous
  Country: US (occurrence: US)
  Receive Date: 20160720
  Receipt Date: 20160720
  Transmission Date: 20161109
  Serious: No
  Sender: FDA-Public Use
  Company Number: US-TEVA-670621USA

PATIENT
  Age: 45 Year
  Sex: Female

DRUGS (1)
  1. ZECUITY [Suspect]
     Active Substance: SUMATRIPTAN SUCCINATE
     Route: 062
     Dates: start: 201604

REACTIONS (4)
  - Paraesthesia [Recovered/Resolved]
  - Drug effect decreased [Unknown]
  - Skin texture abnormal [Unknown]
  - Application site discolouration [Recovered/Resolved]

NARRATIVE: CASE EVENT DATE: 201604
